FAERS Safety Report 18851214 (Version 1)
Quarter: 2021Q1

REPORT INFORMATION
  Report Type: Spontaneous
  Country: US (occurrence: US)
  Receive Date: 20210205
  Receipt Date: 20210205
  Transmission Date: 20210420
  Serious: Yes (Other)
  Sender: FDA-Public Use
  Company Number: US-SA-2021SA028791

PATIENT
  Age: 62 Year
  Sex: Male

DRUGS (1)
  1. ZANTAC [Suspect]
     Active Substance: RANITIDINE HYDROCHLORIDE
     Indication: GASTROOESOPHAGEAL REFLUX DISEASE
     Dosage: 150 MG
     Dates: start: 197801, end: 201901

REACTIONS (3)
  - Neoplasm malignant [Unknown]
  - Disease progression [Not Recovered/Not Resolved]
  - Prostate cancer stage III [Not Recovered/Not Resolved]

NARRATIVE: CASE EVENT DATE: 20190719
